FAERS Safety Report 21799826 (Version 1)
Quarter: 2022Q4

REPORT INFORMATION
  Report Type: Spontaneous
  Country: US (occurrence: US)
  Receive Date: 20221230
  Receipt Date: 20221230
  Transmission Date: 20230112
  Serious: Yes (Hospitalization, Other)
  Sender: FDA-Public Use
  Company Number: US-GLAXOSMITHKLINE-US2022GSK193277

PATIENT

DRUGS (3)
  1. LAMOTRIGINE [Suspect]
     Active Substance: LAMOTRIGINE
     Indication: Bipolar II disorder
     Dosage: 25 MG
  2. LAMOTRIGINE [Suspect]
     Active Substance: LAMOTRIGINE
     Dosage: 50 MG
  3. LAMOTRIGINE [Suspect]
     Active Substance: LAMOTRIGINE
     Dosage: 100 MG

REACTIONS (15)
  - Drug-induced liver injury [Recovered/Resolved]
  - Drug reaction with eosinophilia and systemic symptoms [Recovered/Resolved]
  - Rash morbilliform [Recovered/Resolved]
  - Ocular icterus [Recovered/Resolved]
  - Fatigue [Recovered/Resolved]
  - Abdominal pain [Recovered/Resolved]
  - Increased tendency to bruise [Unknown]
  - Jaundice [Recovered/Resolved]
  - Autoimmune disorder [Unknown]
  - Cholestatic liver injury [Unknown]
  - Vanishing bile duct syndrome [Unknown]
  - Faeces pale [Recovered/Resolved]
  - Cholestasis [Recovered/Resolved]
  - Pruritus [Recovered/Resolved]
  - Dizziness postural [Recovered/Resolved]
